FAERS Safety Report 9370161 (Version 2)
Quarter: 2013Q3

REPORT INFORMATION
  Report Type: Spontaneous
  Country: US (occurrence: None)
  Receive Date: 20130624
  Receipt Date: 20130712
  Transmission Date: 20140515
  Serious: Yes (Hospitalization)
  Sender: FDA-Public Use
  Company Number: ACO_36724_2013

PATIENT
  Age: 39 Year
  Sex: Female
  Weight: 74.8 kg

DRUGS (4)
  1. AMPYRA [Suspect]
     Indication: MULTIPLE SCLEROSIS
     Route: 048
     Dates: start: 201201, end: 201303
  2. AMPYRA [Suspect]
     Indication: GAIT DISTURBANCE
     Route: 048
     Dates: start: 201201, end: 201303
  3. NALTREXONE HYDROCHLORIDE (NALTREXONE HYDROCHLORIDE) [Concomitant]
  4. AMBIEN (ZOLPIDEM TARTRATE) [Concomitant]

REACTIONS (12)
  - Convulsion [None]
  - Therapeutic response unexpected [None]
  - Anxiety [None]
  - Nausea [None]
  - Convulsion [None]
  - Dyspnoea [None]
  - Respiratory rate increased [None]
  - Balance disorder [None]
  - Staring [None]
  - Treatment noncompliance [None]
  - Loss of consciousness [None]
  - Hemiparesis [None]
